FAERS Safety Report 5354547-4 (Version None)
Quarter: 2007Q2

REPORT INFORMATION
  Report Type: 
  Country: None (occurrence: None)
  Receive Date: 20070608
  Receipt Date: 20070605
  Transmission Date: 20071010
  Serious: Yes (Death, Life-Threatening, Hospitalization, Disabling, Other)
  Sender: FDA-Public Use
  Company Number: 118-C5013-07060150

PATIENT
  Age: 52 Year
  Sex: Male

DRUGS (3)
  1. CC-5013 (LENALIDOMIDE) (CAPSULES) [Suspect]
     Indication: MULTIPLE MYELOMA
     Dosage: 25 MG, DAILY, ORAL
     Route: 048
     Dates: start: 20070517, end: 20070523
  2. OMEPRAZOLE [Suspect]
     Indication: PROPHYLAXIS
     Dosage: FOR SOME YEARS
  3. DEXAMETHASONE TAB [Concomitant]

REACTIONS (4)
  - NEUTROPENIA [None]
  - NO THERAPEUTIC RESPONSE [None]
  - SEPTIC SHOCK [None]
  - SHOCK [None]
